FAERS Safety Report 9155346 (Version 2)
Quarter: 2013Q1

REPORT INFORMATION
  Report Type: Spontaneous
  Country: US (occurrence: US)
  Receive Date: 20130311
  Receipt Date: 20130315
  Transmission Date: 20140127
  Serious: Yes (Hospitalization)
  Sender: FDA-Public Use
  Company Number: US-ASTRAZENECA-2013SE15204

PATIENT
  Age: 66 Day
  Sex: Female
  Weight: 3.5 kg

DRUGS (12)
  1. SYNAGIS [Suspect]
     Route: 030
  2. SYNAGIS [Suspect]
     Route: 030
  3. SEPTRA [Concomitant]
     Dosage: 200 MG-40 MG/ 5 ML, 0.8 ML BY MOUTH 2 TIMES A DAY ON MONDAY,WEDNESDAY AND FRIDAY
     Route: 048
     Dates: start: 20130115
  4. SEPTRA [Concomitant]
     Dosage: 200 MG-40 MG/ 5 ML, 0.8 ML BY MOUTH 2 TIMES A DAY
     Route: 048
     Dates: start: 20130304
  5. CALCIUM + MAGNESIUM [Concomitant]
  6. CALCIUM GLUBIONATE [Concomitant]
     Dosage: 1.8 G/ 5 ML, 0792 GM BY MOUTH 3 TIMES A DAY
     Route: 048
     Dates: start: 20130114
  7. CALCIUM GLUBIONATE [Concomitant]
     Dosage: 1.8 G/ 5 ML, 0792 GM BY MOUTH 3 TIMES A DAY
     Route: 048
     Dates: start: 20130304
  8. FUROSEMIDE [Concomitant]
     Dosage: 10 MG/ML, 2.5 MG BY MOUTH 2 TIMS A DAY FOR 30 DAYS
     Route: 048
  9. MAGNESIUM GLUCONATE [Concomitant]
     Dosage: 1000 MG/ 5 ML, 130 MG 2 TIMES A DAY
     Route: 048
     Dates: start: 20130114
  10. MAGNESIUM GLUCONATE [Concomitant]
     Dosage: 1000 MG/ 5 ML, 130 MG 2 TIMES A DAY
     Route: 048
     Dates: start: 20130304
  11. SIMETHICONE [Concomitant]
     Indication: FLATULENCE
     Dosage: 62.5 MG/ 5 ML, 20 MG BY MOUTH 2 TIMES A DAY AS NEEDED
     Route: 048
  12. SIMETHICONE [Concomitant]
     Indication: FLATULENCE
     Dosage: 20 MG, Q6HRPRN
     Route: 048

REACTIONS (1)
  - Dyspnoea [Recovering/Resolving]
